FAERS Safety Report 9926052 (Version 1)
Quarter: 2014Q1

REPORT INFORMATION
  Report Type: Spontaneous
  Country: US (occurrence: US)
  Receive Date: 20140226
  Receipt Date: 20140226
  Transmission Date: 20141002
  Serious: Yes (Hospitalization, Other)
  Sender: FDA-Public Use
  Company Number: US-ELI_LILLY_AND_COMPANY-US201402006262

PATIENT
  Age: 10 Year
  Sex: Female

DRUGS (2)
  1. HUMALOG LISPRO [Suspect]
     Indication: PRODUCT USED FOR UNKNOWN INDICATION
     Route: 058
  2. NOVOLOG [Concomitant]

REACTIONS (9)
  - Diabetic ketoacidosis [Unknown]
  - Blood glucose increased [Unknown]
  - Pharyngitis streptococcal [Unknown]
  - Malaise [Unknown]
  - Vomiting [Unknown]
  - Pyrexia [Unknown]
  - Muscle spasms [Unknown]
  - Dehydration [Unknown]
  - Poor venous access [Unknown]
